FAERS Safety Report 10181285 (Version 1)
Quarter: 2014Q2

REPORT INFORMATION
  Report Type: Spontaneous
  Country: US (occurrence: US)
  Receive Date: 20140519
  Receipt Date: 20140519
  Transmission Date: 20141212
  Serious: No
  Sender: FDA-Public Use
  Company Number: US-AMGEN INC.-USASP2014031869

PATIENT
  Age: 78 Year
  Sex: Female

DRUGS (8)
  1. PROLIA [Suspect]
     Indication: OSTEOPOROSIS POSTMENOPAUSAL
     Dosage: UNK
     Route: 065
     Dates: start: 201402
  2. ATENOLOL [Concomitant]
     Route: 065
  3. TRAVATAN Z [Concomitant]
     Route: 065
  4. ALPHAGAN P [Concomitant]
     Route: 065
  5. CHLORTRIMETON [Concomitant]
     Indication: HYPERSENSITIVITY
     Dosage: UNK UNK, AS NECESSARY
     Route: 065
  6. TYLENOL                            /00020001/ [Concomitant]
     Dosage: AS NEEDED
     Route: 065
  7. FISH OIL [Concomitant]
     Route: 065
  8. CALCIUM [Concomitant]
     Dosage: 2 TO 3 TIMES A DAY
     Route: 065

REACTIONS (2)
  - Scratch [Recovered/Resolved]
  - Pruritus [Recovered/Resolved]
